FAERS Safety Report 24175606 (Version 1)
Quarter: 2024Q3

REPORT INFORMATION
  Report Type: Spontaneous
  Country: AU (occurrence: AU)
  Receive Date: 20240805
  Receipt Date: 20240805
  Transmission Date: 20241017
  Serious: Yes (Hospitalization, Other)
  Sender: Waylis
  Company Number: AU-WAYLIS-2024-AU-000314

PATIENT
  Age: 79 Year
  Sex: Male

DRUGS (10)
  1. DUTASTERIDE\TAMSULOSIN HYDROCHLORIDE [Suspect]
     Active Substance: DUTASTERIDE\TAMSULOSIN HYDROCHLORIDE
     Indication: Product used for unknown indication
     Dosage: UNK
  2. SOTALOL [Suspect]
     Active Substance: SOTALOL
     Dosage: 80 MG, BID; 120/80MG; 160 MG, QD
  3. FLUAD QUADRIVALENT NOS [Suspect]
     Active Substance: INFLUENZA A VIRUS A/HONG KONG/2671/2019 IVR-208 (H3N2) ANTIGEN (FORMALDEHYDE INACTIVATED)\INFLUENZA
     Dosage: UNK
     Dates: start: 20240418
  4. AMLODIPINE [Suspect]
     Active Substance: AMLODIPINE BESYLATE
     Dosage: UNK
  5. APIXABAN [Suspect]
     Active Substance: APIXABAN
     Dosage: UNK
  6. ATORVASTATIN [Suspect]
     Active Substance: ATORVASTATIN
     Dosage: UNK
  7. ESCITALOPRAM OXALATE [Suspect]
     Active Substance: ESCITALOPRAM OXALATE
     Dosage: UNK
  8. NITROGLYCERIN [Suspect]
     Active Substance: NITROGLYCERIN
     Dosage: UNK
  9. IRBESARTAN [Suspect]
     Active Substance: IRBESARTAN
     Dosage: UNK
  10. OMEPRAZOLE [Suspect]
     Active Substance: OMEPRAZOLE
     Dosage: UNK

REACTIONS (5)
  - Atrial fibrillation [Recovered/Resolved]
  - Chest pain [Recovered/Resolved]
  - Dizziness [Recovered/Resolved]
  - Hypomagnesaemia [Unknown]
  - Palpitations [Recovered/Resolved]

NARRATIVE: CASE EVENT DATE: 20240419
